FAERS Safety Report 6344079-9 (Version None)
Quarter: 2009Q3

REPORT INFORMATION
  Report Type: 
  Country: None (occurrence: None)
  Receive Date: 20090908
  Receipt Date: 20090831
  Transmission Date: 20100115
  Serious: Yes (Hospitalization)
  Sender: FDA-Public Use
  Company Number: JP-MERCK-0908USA03913

PATIENT
  Age: 67 Year
  Sex: Female

DRUGS (12)
  1. ZETIA [Suspect]
     Indication: HYPERLIPIDAEMIA
     Route: 048
     Dates: start: 20090806, end: 20090813
  2. PREDNISOLONE [Concomitant]
     Route: 065
     Dates: start: 20090602
  3. IBUPROFEN PICONOL [Concomitant]
     Route: 065
     Dates: start: 20090604
  4. POLAPREZINC [Concomitant]
     Route: 065
     Dates: start: 20090724
  5. LEVOFLOXACIN [Concomitant]
     Route: 065
  6. LIDOCAINE [Concomitant]
     Route: 065
  7. RANITIDINE HYDROCHLORIDE [Concomitant]
     Route: 065
     Dates: start: 20090602, end: 20090724
  8. DIPYRIDAMOLE [Concomitant]
     Route: 065
     Dates: start: 20090603, end: 20090610
  9. FUROSEMIDE [Concomitant]
     Route: 065
     Dates: start: 20090603, end: 20090625
  10. TRIPAMIDE [Concomitant]
     Route: 065
     Dates: start: 20090609, end: 20090620
  11. WARFARIN POTASSIUM [Concomitant]
     Route: 065
     Dates: start: 20090610, end: 20090707
  12. ATORVASTATIN CALCIUM [Concomitant]
     Route: 065
     Dates: start: 20090615, end: 20090626

REACTIONS (4)
  - ALANINE AMINOTRANSFERASE INCREASED [None]
  - ASPARTATE AMINOTRANSFERASE INCREASED [None]
  - BLOOD ALKALINE PHOSPHATASE INCREASED [None]
  - LIVER DISORDER [None]
